FAERS Safety Report 10619499 (Version 1)
Quarter: 2014Q4

REPORT INFORMATION
  Report Type: Spontaneous
  Country: NL (occurrence: None)
  Receive Date: 20141126
  Receipt Date: 20141126
  Transmission Date: 20150529
  Serious: Yes (Life-Threatening, Hospitalization)
  Sender: FDA-Public Use
  Company Number: IPC201411-000615

PATIENT
  Age: 55 Year
  Sex: Male

DRUGS (11)
  1. PANTOPRAZOLE [Suspect]
     Active Substance: PANTOPRAZOLE SODIUM
  2. AMITRIPTYLINE (AMITRIPTYLINE) (AMITRIPTYLINE) [Suspect]
     Active Substance: AMITRIPTYLINE
     Indication: GENERALISED ANXIETY DISORDER
  3. VITAMIN B COMPLEX [Suspect]
     Active Substance: CYANOCOBALAMIN\DEXPANTHENOL\NIACINAMIDE\PYRIDOXINE HYDROCHLORIDE\RIBOFLAVIN 5^-PHOSPHATE SODIUM\THIAMINE HYDROCHLORIDE\VITAMIN B COMPLEX
  4. CITALOPRAM [Suspect]
     Active Substance: CITALOPRAM HYDROBROMIDE
     Indication: GENERALISED ANXIETY DISORDER
  5. NOVORAPID [Suspect]
     Active Substance: INSULIN ASPART
  6. METOPROLOL TARTRATE (METOPROLOL TARTRATE) (METOPROLOL TARTRATE) [Suspect]
     Active Substance: METOPROLOL TARTRATE
  7. AMLODIPINE BESILATE (AMLODIPINE BESILATE) (AMLODIPINE BESILATE) [Suspect]
     Active Substance: AMLODIPINE BESYLATE
  8. NALOXONE [Concomitant]
     Active Substance: NALOXONE
  9. MORPHINE (MORPHINE) (MORPHINE) [Suspect]
     Active Substance: MORPHINE
  10. OXAZEPAM. [Suspect]
     Active Substance: OXAZEPAM
  11. FERROUS FUMARATE [Suspect]
     Active Substance: FERROUS FUMARATE

REACTIONS (20)
  - Abdominal sepsis [None]
  - Pulmonary embolism [None]
  - Inappropriate antidiuretic hormone secretion [None]
  - Bronchospasm [None]
  - Hypertension [None]
  - Agitation [None]
  - Serotonin syndrome [None]
  - Somnolence [None]
  - Hyponatraemia [None]
  - Clonic convulsion [None]
  - Hypoxia [None]
  - Gastrointestinal perforation [None]
  - Hypercapnia [None]
  - Tachycardia [None]
  - Anxiety [None]
  - Hyperthermia [None]
  - Intentional overdose [None]
  - White blood cell count decreased [None]
  - Pneumonia [None]
  - Muscular weakness [None]
